FAERS Safety Report 17228486 (Version 2)
Quarter: 2020Q1

REPORT INFORMATION
  Report Type: Spontaneous
  Country: AU (occurrence: AU)
  Receive Date: 20200103
  Receipt Date: 20200103
  Transmission Date: 20200409
  Serious: Yes (Hospitalization)
  Sender: FDA-Public Use
  Company Number: AU-PFIZER INC-2019556834

PATIENT
  Age: 44 Year
  Sex: Female

DRUGS (12)
  1. DOXORUBICIN HCL [Suspect]
     Active Substance: DOXORUBICIN HYDROCHLORIDE
     Indication: HEPATOSPLENIC T-CELL LYMPHOMA
  2. METHOTREXATE. [Suspect]
     Active Substance: METHOTREXATE
     Indication: HEPATOSPLENIC T-CELL LYMPHOMA
  3. VINCRISTINE SULFATE. [Suspect]
     Active Substance: VINCRISTINE SULFATE
     Indication: LARGE GRANULAR LYMPHOCYTOSIS
     Dosage: UNK, CYCLIC (INDUCTION THERAPY)
  4. METHOTREXATE. [Suspect]
     Active Substance: METHOTREXATE
     Indication: LARGE GRANULAR LYMPHOCYTOSIS
     Dosage: HIGH-DOSE
  5. DEXAMETHASONE SODIUM PHOSPHATE. [Suspect]
     Active Substance: DEXAMETHASONE SODIUM PHOSPHATE
     Indication: HEPATOSPLENIC T-CELL LYMPHOMA
  6. DOXORUBICIN HCL [Suspect]
     Active Substance: DOXORUBICIN HYDROCHLORIDE
     Indication: LARGE GRANULAR LYMPHOCYTOSIS
     Dosage: UNK, CYCLIC (INDUCTION THERAPY)
  7. CYTARABINE. [Suspect]
     Active Substance: CYTARABINE
     Indication: HEPATOSPLENIC T-CELL LYMPHOMA
     Dosage: 1500 MG/M2, CYCLIC
  8. CYCLOPHOSPHAMIDE. [Suspect]
     Active Substance: CYCLOPHOSPHAMIDE
     Indication: HEPATOSPLENIC T-CELL LYMPHOMA
  9. VINCRISTINE SULFATE. [Suspect]
     Active Substance: VINCRISTINE SULFATE
     Indication: HEPATOSPLENIC T-CELL LYMPHOMA
  10. CYTARABINE. [Suspect]
     Active Substance: CYTARABINE
     Indication: LARGE GRANULAR LYMPHOCYTOSIS
     Dosage: 3000 MG/M2, CYCLIC
  11. CYCLOPHOSPHAMIDE. [Suspect]
     Active Substance: CYCLOPHOSPHAMIDE
     Indication: LARGE GRANULAR LYMPHOCYTOSIS
     Dosage: UNK, CYCLIC (INDUCTION THERAPY)
  12. DEXAMETHASONE SODIUM PHOSPHATE. [Suspect]
     Active Substance: DEXAMETHASONE SODIUM PHOSPHATE
     Indication: LARGE GRANULAR LYMPHOCYTOSIS
     Dosage: UNK, CYCLIC (INDUCTION THERAPY)

REACTIONS (2)
  - Toxicity to various agents [Unknown]
  - Neutropenic sepsis [Unknown]
